FAERS Safety Report 9309571 (Version 1)
Quarter: 2013Q2

REPORT INFORMATION
  Report Type: Spontaneous
  Country: US (occurrence: US)
  Receive Date: 20130525
  Receipt Date: 20130525
  Transmission Date: 20140414
  Serious: No
  Sender: FDA-Public Use
  Company Number: US-BRISTOL-MYERS SQUIBB COMPANY-17462755

PATIENT
  Age: 43 Year
  Sex: Female

DRUGS (1)
  1. BYDUREON [Suspect]
     Indication: POLYCYSTIC OVARIES
     Route: 058
     Dates: start: 201212

REACTIONS (2)
  - Injection site nodule [Recovering/Resolving]
  - Off label use [Not Recovered/Not Resolved]
